FAERS Safety Report 25211379 (Version 1)
Quarter: 2025Q2

REPORT INFORMATION
  Report Type: Spontaneous
  Country: VN (occurrence: VN)
  Receive Date: 20250417
  Receipt Date: 20250417
  Transmission Date: 20250717
  Serious: Yes (Death, Other)
  Sender: NOVARTIS
  Company Number: VN-002147023-NVSC2025VN063777

PATIENT
  Age: 56 Year
  Sex: Male

DRUGS (1)
  1. NILOTINIB [Suspect]
     Active Substance: NILOTINIB
     Indication: Chronic myeloid leukaemia
     Dosage: 400 MG, BID
     Route: 065

REACTIONS (3)
  - Chronic myeloid leukaemia [Fatal]
  - Malignant neoplasm progression [Fatal]
  - Drug ineffective [Unknown]
